FAERS Safety Report 19094102 (Version 1)
Quarter: 2021Q2

REPORT INFORMATION
  Report Type: Spontaneous
  Country: US (occurrence: US)
  Receive Date: 20210405
  Receipt Date: 20210405
  Transmission Date: 20210717
  Serious: No
  Sender: FDA-Public Use
  Company Number: US-SA-2021SA107683

PATIENT
  Sex: Female

DRUGS (5)
  1. LORATADINE. [Concomitant]
     Active Substance: LORATADINE
     Indication: DEHYDRATION
  2. FLUTICASONE. [Concomitant]
     Active Substance: FLUTICASONE
     Indication: DIZZINESS
  3. NASACORT ALLERGY 24HR [Suspect]
     Active Substance: TRIAMCINOLONE ACETONIDE
     Indication: SEASONAL ALLERGY
     Dosage: ONE SPRAY EACH NOSTRIL
  4. LORATADINE. [Concomitant]
     Active Substance: LORATADINE
     Indication: DIZZINESS
  5. FLUTICASONE. [Concomitant]
     Active Substance: FLUTICASONE
     Indication: DEHYDRATION

REACTIONS (1)
  - Dizziness [Unknown]
